FAERS Safety Report 13686712 (Version 1)
Quarter: 2017Q2

REPORT INFORMATION
  Report Type: Spontaneous
  Country: IT (occurrence: IT)
  Receive Date: 20170623
  Receipt Date: 20170623
  Transmission Date: 20170830
  Serious: Yes (Hospitalization)
  Sender: FDA-Public Use
  Company Number: IT-AMGEN-ITASP2017094153

PATIENT
  Age: 48 Year
  Sex: Male

DRUGS (11)
  1. OMEPRAZOLE. [Concomitant]
     Active Substance: OMEPRAZOLE
     Dosage: UNK
  2. EPIRUBICIN TEVA [Concomitant]
     Active Substance: EPIRUBICIN
     Indication: SOFT TISSUE SARCOMA
     Dosage: 114 MG, UNK
     Route: 042
     Dates: start: 20170323
  3. EMEND [Concomitant]
     Active Substance: APREPITANT
     Dosage: 125 MG+80 MG
  4. RANITIDINE. [Concomitant]
     Active Substance: RANITIDINE
     Dosage: UNK
  5. UROMITEXAN [Concomitant]
     Active Substance: MESNA
     Dosage: UNK
  6. KCL RETARD [Concomitant]
     Active Substance: POTASSIUM CHLORIDE
     Dosage: UNK
  7. NEULASTA [Suspect]
     Active Substance: PEGFILGRASTIM
     Indication: PROPHYLAXIS
     Dosage: 6 MG, AS NECESSARY
     Route: 058
     Dates: start: 20170417
  8. HOLOXAN [Concomitant]
     Active Substance: IFOSFAMIDE
     Indication: SOFT TISSUE SARCOMA
     Dosage: 5700 MG, UNK
     Route: 042
     Dates: start: 20170413
  9. ONDASETRON [Concomitant]
     Active Substance: ONDANSETRON
     Dosage: UNK
  10. DEXAMETHASONE DISODIUM PHOSPHATE [Concomitant]
     Active Substance: DEXAMETHASONE SODIUM PHOSPHATE
     Dosage: UNK
  11. LYRICA [Concomitant]
     Active Substance: PREGABALIN
     Dosage: UNK

REACTIONS (3)
  - Product measured potency issue [Recovered/Resolved]
  - Drug ineffective [Recovered/Resolved]
  - Neutropenia [Recovered/Resolved]

NARRATIVE: CASE EVENT DATE: 20170422
